FAERS Safety Report 8329324-2 (Version None)
Quarter: 2012Q2

REPORT INFORMATION
  Report Type: 
  Country: None (occurrence: None)
  Receive Date: 20120502
  Receipt Date: 20110826
  Transmission Date: 20120825
  Serious: No
  Sender: FDA-Public Use
  Company Number: US-ASTRAZENECA-2011SE51548

PATIENT
  Sex: Female
  Weight: 44.5 kg

DRUGS (2)
  1. FASLODEX [Suspect]
     Indication: BREAST CANCER
     Route: 030
     Dates: start: 20110701
  2. VITAMIN TAB [Concomitant]

REACTIONS (7)
  - DYSPNOEA [None]
  - DYSPEPSIA [None]
  - WEIGHT DECREASED [None]
  - SUNBURN [None]
  - PAIN [None]
  - DYSENTERY [None]
  - NAUSEA [None]
